FAERS Safety Report 6048134-2 (Version None)
Quarter: 2009Q1

REPORT INFORMATION
  Report Type: 
  Country: None (occurrence: None)
  Receive Date: 20090121
  Receipt Date: 20080403
  Transmission Date: 20090719
  Serious: Yes (Life-Threatening, Other)
  Sender: FDA-Public Use
  Company Number: HQWYE121210OCT03

PATIENT
  Age: 69 Year
  Sex: Female

DRUGS (1)
  1. PREMPRO [Suspect]
     Indication: HORMONE REPLACEMENT THERAPY
     Dosage: UNSPECIFIED DAILY DOSAGE, ORAL
     Route: 048

REACTIONS (2)
  - BREAST CANCER FEMALE [None]
  - OVARIAN CANCER METASTATIC [None]
